FAERS Safety Report 20449711 (Version 10)
Quarter: 2022Q3

REPORT INFORMATION
  Report Type: Spontaneous
  Country: US (occurrence: US)
  Receive Date: 20220209
  Receipt Date: 20220914
  Transmission Date: 20221026
  Serious: Yes (Hospitalization, Other)
  Sender: FDA-Public Use
  Company Number: US-PFIZER INC-202200174194

PATIENT
  Age: 69 Year
  Sex: Female

DRUGS (5)
  1. IBRANCE [Suspect]
     Active Substance: PALBOCICLIB
     Dosage: 125 MG
     Dates: start: 20220103
  2. IBRANCE [Suspect]
     Active Substance: PALBOCICLIB
     Dosage: 125 MG
     Dates: start: 20220118, end: 20220120
  3. IBRANCE [Suspect]
     Active Substance: PALBOCICLIB
     Dosage: UNK
     Dates: start: 20220120
  4. IBRANCE [Suspect]
     Active Substance: PALBOCICLIB
     Dosage: 75 MG
     Dates: start: 20220216
  5. IBRANCE [Suspect]
     Active Substance: PALBOCICLIB
     Dosage: 75 MG, CYCLIC (75MG DAILY FOR 14 DAYS ON THEN 14 DAYS OFF)

REACTIONS (15)
  - Tachycardia [Unknown]
  - Hypotension [Unknown]
  - Dehydration [Unknown]
  - Vomiting [Unknown]
  - Chronic kidney disease [Unknown]
  - Atrial fibrillation [Unknown]
  - Off label use [Unknown]
  - Product use issue [Unknown]
  - Nausea [Unknown]
  - Flatulence [Unknown]
  - Headache [Unknown]
  - Increased tendency to bruise [Unknown]
  - White blood cell count decreased [Unknown]
  - Fatigue [Not Recovered/Not Resolved]
  - Peripheral swelling [Not Recovered/Not Resolved]

NARRATIVE: CASE EVENT DATE: 20220101
